FAERS Safety Report 10883033 (Version 1)
Quarter: 2015Q1

REPORT INFORMATION
  Report Type: Spontaneous
  Country: IT (occurrence: IT)
  Receive Date: 20150303
  Receipt Date: 20150303
  Transmission Date: 20150721
  Serious: Yes (Other)
  Sender: FDA-Public Use
  Company Number: IT-ELI_LILLY_AND_COMPANY-IT201502007875

PATIENT
  Age: 85 Year
  Sex: Male

DRUGS (3)
  1. FORSTEO [Suspect]
     Active Substance: TERIPARATIDE
     Dosage: UNK, UNKNOWN
     Route: 065
     Dates: start: 20150216
  2. FORSTEO [Suspect]
     Active Substance: TERIPARATIDE
     Indication: PELVIC FRACTURE
     Dosage: UNK, UNKNOWN
     Route: 065
  3. FORSTEO [Suspect]
     Active Substance: TERIPARATIDE
     Indication: ADRENOCORTICAL STEROID THERAPY
     Dosage: UNK, UNKNOWN
     Route: 065
     Dates: start: 201412

REACTIONS (4)
  - Off label use [Unknown]
  - Glomerulonephritis [Unknown]
  - Spinal fracture [Unknown]
  - Arthralgia [Unknown]
